FAERS Safety Report 9071728 (Version 3)
Quarter: 2013Q2

REPORT INFORMATION
  Report Type: Spontaneous
  Country: AU (occurrence: AU)
  Receive Date: 20130206
  Receipt Date: 20130521
  Transmission Date: 20140414
  Serious: Yes (Death, Life-Threatening, Hospitalization, Disabling, Other)
  Sender: FDA-Public Use
  Company Number: AU-B.I. PHARMACEUTICALS,INC./RIDGEFIELD-2013-AU-00077AU

PATIENT
  Age: 90 Year
  Sex: Male
  Weight: 71 kg

DRUGS (23)
  1. PRADAXA [Suspect]
     Indication: ATRIAL FIBRILLATION
     Dosage: 220 MG
     Route: 048
     Dates: end: 20121205
  2. PRADAXA [Suspect]
     Dosage: 220 MG
     Dates: end: 20130418
  3. ARTHO AID [Concomitant]
     Dosage: 1500 MG
     Route: 048
  4. CELESTONE-M [Concomitant]
     Dosage: 0.02%
     Route: 061
  5. CHLORSIG [Concomitant]
     Dosage: 0.5%
     Route: 031
  6. DURO-K [Concomitant]
     Dosage: 600 MG
     Route: 048
  7. FLEET PHOSPHO-SODA [Concomitant]
     Dosage: 2.16G-8
     Route: 048
  8. GLYADE [Concomitant]
     Dosage: 30 MG
     Route: 048
  9. KENACOMB [Concomitant]
     Dosage: 0.1%-0.2
     Route: 061
  10. LANOXIN [Concomitant]
     Dosage: 250 MCG
     Route: 048
  11. MORPHINE SULFATE [Concomitant]
     Dosage: 10 MG/ML; 25-50 MG DAILY
     Route: 030
  12. NEXIUM [Concomitant]
     Dosage: 20 MG
     Route: 048
  13. PANADEINE FORTE [Concomitant]
     Dosage: 500MG/30MG
     Route: 048
  14. PANAMAX [Concomitant]
     Dosage: 1000 MG
     Route: 048
  15. PROGOUT [Concomitant]
     Dosage: 300 MG
     Route: 048
  16. RENITEC PLUS [Concomitant]
     Dosage: 20MG/6MG
     Route: 048
  17. SALICYLIC ACID [Concomitant]
     Route: 061
  18. SYMBICORT [Concomitant]
     Dosage: 400MCG-12MCG/DOSE
     Route: 055
  19. TEMAZE [Concomitant]
     Route: 048
  20. UREDERM [Concomitant]
     Dosage: 10%
     Route: 061
  21. UREMIDE [Concomitant]
     Dosage: 80 MG
     Route: 048
  22. XALATAN [Concomitant]
     Dosage: 50 MCG.ML
     Route: 031
  23. ZOCOR [Concomitant]
     Dosage: 40 MG
     Route: 048

REACTIONS (6)
  - Gastrointestinal haemorrhage [Fatal]
  - Bladder cancer [Fatal]
  - Prostate cancer [Fatal]
  - Cerebrovascular accident [Recovered/Resolved]
  - Peripheral artery aneurysm [Unknown]
  - Haematuria [Unknown]
